FAERS Safety Report 11291148 (Version 2)
Quarter: 2015Q3

REPORT INFORMATION
  Report Type: Spontaneous
  Country: FR (occurrence: FR)
  Receive Date: 20150722
  Receipt Date: 20150728
  Transmission Date: 20151125
  Serious: Yes (Hospitalization, Other)
  Sender: FDA-Public Use
  Company Number: FR-SA-2015SA063628

PATIENT
  Sex: Male
  Weight: 55 kg

DRUGS (1)
  1. TERIFLUNOMIDE [Suspect]
     Active Substance: TERIFLUNOMIDE
     Indication: MULTIPLE SCLEROSIS
     Route: 048
     Dates: start: 20150115, end: 20150421

REACTIONS (2)
  - Liver injury [Recovered/Resolved]
  - Skin plaque [Not Recovered/Not Resolved]

NARRATIVE: CASE EVENT DATE: 201504
